FAERS Safety Report 6218506-1 (Version None)
Quarter: 2009Q2

REPORT INFORMATION
  Report Type: 
  Country: None (occurrence: None)
  Receive Date: 20090608
  Receipt Date: 20090603
  Transmission Date: 20091009
  Serious: Yes (Death)
  Sender: FDA-Public Use
  Company Number: US-TYCO HEALTHCARE/MALLINCKRODT-T200900588

PATIENT
  Age: 17 Year
  Sex: Female

DRUGS (3)
  1. OXYCODONE [Suspect]
  2. VALIUM [Suspect]
  3. XANAX [Suspect]

REACTIONS (2)
  - MULTIPLE DRUG OVERDOSE ACCIDENTAL [None]
  - UNRESPONSIVE TO STIMULI [None]
